FAERS Safety Report 17946703 (Version 2)
Quarter: 2021Q3

REPORT INFORMATION
  Report Type: Spontaneous
  Country: JP (occurrence: JP)
  Receive Date: 20200626
  Receipt Date: 20210709
  Transmission Date: 20211014
  Serious: Yes (Death, Other)
  Sender: FDA-Public Use
  Company Number: JP-AUROBINDO-AUR-APL-2020-030733

PATIENT
  Age: 72 Year
  Sex: Male

DRUGS (4)
  1. FOLOTYN [Suspect]
     Active Substance: PRALATREXATE
     Dosage: UNK
     Route: 042
     Dates: end: 20190423
  2. FOLOTYN [Suspect]
     Active Substance: PRALATREXATE
     Dosage: 20 MILLIGRAM/SQ. METER, DAILY
     Route: 042
     Dates: start: 201811
  3. LEUCOVORIN. [Concomitant]
     Active Substance: LEUCOVORIN
     Indication: PRODUCT USED FOR UNKNOWN INDICATION
     Dosage: UNK
     Route: 065
  4. FOLOTYN [Suspect]
     Active Substance: PRALATREXATE
     Indication: INTESTINAL T-CELL LYMPHOMA RECURRENT
     Dosage: 20 MILLIGRAM/SQ. METER, DAILY
     Route: 042

REACTIONS (3)
  - Oral disorder [Unknown]
  - Febrile neutropenia [Unknown]
  - Malignant neoplasm progression [Fatal]
